FAERS Safety Report 13527881 (Version 1)
Quarter: 2017Q2

REPORT INFORMATION
  Report Type: Spontaneous
  Country: US (occurrence: US)
  Receive Date: 20170509
  Receipt Date: 20170509
  Transmission Date: 20170830
  Serious: No
  Sender: FDA-Public Use
  Company Number: US-PFIZER INC-2017195207

PATIENT
  Sex: Male
  Weight: 95.24 kg

DRUGS (2)
  1. AMITRIPTYLINE [Interacting]
     Active Substance: AMITRIPTYLINE
     Dosage: UNK
  2. LYRICA [Suspect]
     Active Substance: PREGABALIN
     Indication: POLYNEUROPATHY
     Dosage: UNK

REACTIONS (6)
  - Intentional product misuse [Unknown]
  - Aggression [Unknown]
  - Drug interaction [Unknown]
  - Vision blurred [Unknown]
  - Headache [Unknown]
  - Amnesia [Unknown]
